FAERS Safety Report 6241399-3 (Version None)
Quarter: 2009Q2

REPORT INFORMATION
  Report Type: 
  Country: None (occurrence: None)
  Receive Date: 20090623
  Receipt Date: 20090618
  Transmission Date: 20091009
  Serious: Yes (Other)
  Sender: FDA-Public Use
  Company Number: US-SANOFI-SYNTHELABO-A03200902731

PATIENT
  Sex: Male

DRUGS (1)
  1. AMBIEN CR [Suspect]
     Route: 048

REACTIONS (1)
  - IMPAIRED DRIVING ABILITY [None]
